FAERS Safety Report 20946881 (Version 2)
Quarter: 2022Q2

REPORT INFORMATION
  Report Type: Report from Study
  Country: BR (occurrence: BR)
  Receive Date: 20220610
  Receipt Date: 20220615
  Transmission Date: 20220720
  Serious: Yes (Hospitalization)
  Sender: FDA-Public Use
  Company Number: BR-JNJFOC-20210960597

PATIENT
  Age: 63 Year
  Sex: Female
  Weight: 61 kg

DRUGS (3)
  1. REMICADE [Suspect]
     Active Substance: INFLIXIMAB
     Indication: Rheumatoid arthritis
     Route: 041
  2. INFLIXIMAB [Suspect]
     Active Substance: INFLIXIMAB
     Indication: Rheumatoid arthritis
     Dosage: 4 VIALS, TWO FOR THE FIRST DOSE AND TWO FOR THE SECOND
     Route: 041
     Dates: start: 20210819
  3. INFLIXIMAB [Suspect]
     Active Substance: INFLIXIMAB
     Dosage: 3 AMPOULES WERE TAKEN, INSTEAD OF 2 AMPOULES
     Route: 041
     Dates: start: 20210819

REACTIONS (9)
  - Dengue fever [Unknown]
  - Gait disturbance [Unknown]
  - Peripheral swelling [Unknown]
  - Arthralgia [Unknown]
  - Confusional state [Unknown]
  - Skin discolouration [Unknown]
  - Fall [Unknown]
  - Inappropriate schedule of product administration [Unknown]
  - Off label use [Unknown]

NARRATIVE: CASE EVENT DATE: 20210819
